FAERS Safety Report 9989348 (Version 1)
Quarter: 2014Q1

REPORT INFORMATION
  Report Type: Spontaneous
  Country: US (occurrence: None)
  Receive Date: 20140123
  Receipt Date: 20140123
  Transmission Date: 20141002
  Serious: Yes (Other)
  Sender: FDA-Public Use
  Company Number: UTC-039341

PATIENT
  Age: 68 Year
  Sex: Male
  Weight: 67.72 kg

DRUGS (2)
  1. REMODULIN (2.5 MILLIGRAM / MILLILITERS, INJECTION FOR INFUSION) (TREPROSTINIL SODIUM) [Suspect]
     Indication: PULMONARY ARTERIAL HYPERTENSION
     Dosage: 138.24 UG.KG (0.096 UG/KG , 1  IN 1 MIN), INTRAVENOUS DRIP THERAPY DATES 20/MAR/2008 TO ONGOING
     Route: 041
     Dates: start: 20080320
  2. REVATIO (SILDENAFIL CITRATE) [Concomitant]

REACTIONS (2)
  - Thrombocytopenia [None]
  - Abdominal distension [None]
